FAERS Safety Report 6088455-0 (Version None)
Quarter: 2009Q1

REPORT INFORMATION
  Report Type: 
  Country: None (occurrence: None)
  Receive Date: 20090224
  Receipt Date: 20090207
  Transmission Date: 20090719
  Serious: Yes (Other)
  Sender: FDA-Public Use
  Company Number: US-PFIZER INC-2009171121

PATIENT
  Sex: Female
  Weight: 107 kg

DRUGS (2)
  1. GEODON [Suspect]
     Indication: BIPOLAR I DISORDER
     Dosage: UNK
     Dates: start: 20070901, end: 20090205
  2. BUSPAR [Concomitant]
     Dosage: UNK

REACTIONS (1)
  - PAIN [None]
